FAERS Safety Report 24728866 (Version 2)
Quarter: 2024Q4

REPORT INFORMATION
  Report Type: Spontaneous
  Country: CN (occurrence: CN)
  Receive Date: 20241212
  Receipt Date: 20241217
  Transmission Date: 20250114
  Serious: Yes (Other)
  Sender: MERCK
  Company Number: CN-009507513-2412CHN004263

PATIENT
  Age: 47 Year
  Sex: Female

DRUGS (3)
  1. TEMODAL [Suspect]
     Active Substance: TEMOZOLOMIDE
     Indication: Glioblastoma
     Dosage: 75 MG/M2/D ;D1-42
     Dates: start: 20230821
  2. TEMODAL [Suspect]
     Active Substance: TEMOZOLOMIDE
     Dosage: FOR THE FIRST CYCLE: DOSE 150 MG/M2/D, D1-5, STOP FOR 23 DAYS.
  3. TEMODAL [Suspect]
     Active Substance: TEMOZOLOMIDE
     Dosage: FOR CYCLES 2 TO 6: DOSE 200 MG/M2/DAY, D1-5, STOP FOR 23 DAYS

REACTIONS (2)
  - Recurrent cancer [Unknown]
  - Brain radiation necrosis [Unknown]

NARRATIVE: CASE EVENT DATE: 20240601
